FAERS Safety Report 9267561 (Version 1)
Quarter: 2013Q2

REPORT INFORMATION
  Report Type: Spontaneous
  Country: FR (occurrence: FR)
  Receive Date: 20130502
  Receipt Date: 20130502
  Transmission Date: 20140414
  Serious: Yes (Hospitalization)
  Sender: FDA-Public Use
  Company Number: FR-ABBOTT-13X-056-1082965-00

PATIENT
  Age: 6 Year
  Sex: Male

DRUGS (2)
  1. VALPROIC ACID [Suspect]
     Indication: ENCEPHALOPATHY
     Dates: start: 200707, end: 20120826
  2. VALPROIC ACID [Suspect]
     Dates: start: 20120827, end: 201209

REACTIONS (7)
  - Crying [Unknown]
  - Pancreatitis acute [Recovered/Resolved]
  - Abdominal pain [Unknown]
  - Lipase increased [Unknown]
  - Sleep disorder [Unknown]
  - Ascites [Unknown]
  - Infection [Unknown]
